FAERS Safety Report 6701325-7 (Version None)
Quarter: 2010Q2

REPORT INFORMATION
  Report Type: 
  Country: None (occurrence: None)
  Receive Date: 20100429
  Receipt Date: 20100419
  Transmission Date: 20101027
  Serious: Yes (Hospitalization)
  Sender: FDA-Public Use
  Company Number: US-BIOGENIDEC-2009BI032551

PATIENT
  Sex: Female

DRUGS (2)
  1. AVONEX [Suspect]
     Indication: MULTIPLE SCLEROSIS
     Route: 030
     Dates: end: 20090925
  2. AVONEX [Suspect]
     Route: 030
     Dates: start: 20020101

REACTIONS (9)
  - DEHYDRATION [None]
  - DEMENTIA ALZHEIMER'S TYPE [None]
  - ENCEPHALOPATHY [None]
  - ESCHERICHIA URINARY TRACT INFECTION [None]
  - FLUID INTAKE REDUCED [None]
  - HYPERNATRAEMIA [None]
  - HYPOPHAGIA [None]
  - RENAL FAILURE ACUTE [None]
  - URINE OUTPUT DECREASED [None]
